FAERS Safety Report 13520362 (Version 2)
Quarter: 2017Q2

REPORT INFORMATION
  Report Type: Spontaneous
  Country: CA (occurrence: CA)
  Receive Date: 20170507
  Receipt Date: 20170607
  Transmission Date: 20170830
  Serious: Yes (Hospitalization, Other)
  Sender: FDA-Public Use
  Company Number: CA-SHIRE-CA201710002

PATIENT
  Age: 36 Year
  Sex: Male
  Weight: 87 kg

DRUGS (3)
  1. ENTOCORT [Concomitant]
     Active Substance: BUDESONIDE
     Indication: CROHN^S DISEASE
     Dosage: 9 MG, 1X/DAY:QD
     Route: 065
     Dates: start: 2017
  2. MEZAVANT [Suspect]
     Active Substance: MESALAMINE
     Indication: CROHN^S DISEASE
     Dosage: 4.8 MG, 1X/DAY:QD
     Route: 048
     Dates: start: 20170309, end: 20170329
  3. IRON [Concomitant]
     Active Substance: IRON
     Indication: IRON DEFICIENCY
     Dosage: UNK, UNKNOWN
     Route: 065

REACTIONS (10)
  - Frequent bowel movements [Unknown]
  - Nausea [Unknown]
  - Malaise [Unknown]
  - Condition aggravated [Unknown]
  - Crohn^s disease [Unknown]
  - Product use in unapproved indication [Recovered/Resolved]
  - Abdominal pain lower [Unknown]
  - Fatigue [Unknown]
  - Anal fistula [Recovered/Resolved]
  - Myocarditis [Recovered/Resolved]

NARRATIVE: CASE EVENT DATE: 2017
